FAERS Safety Report 11895975 (Version 1)
Quarter: 2016Q1

REPORT INFORMATION
  Report Type: Spontaneous
  Country: GB (occurrence: GB)
  Receive Date: 20160107
  Receipt Date: 20160107
  Transmission Date: 20160526
  Serious: Yes (Other)
  Sender: FDA-Public Use
  Company Number: GB-ASTRAZENECA-2016SE01578

PATIENT
  Age: 27 Year
  Sex: Male
  Weight: 78.5 kg

DRUGS (6)
  1. HALOPERIDOL. [Concomitant]
     Active Substance: HALOPERIDOL
  2. FYBOGEL [Interacting]
     Active Substance: PLANTAGO OVATA SEED
     Indication: CONSTIPATION
     Dosage: UNKNOWN DOSE, AS DIRECTED
     Route: 048
     Dates: start: 20141109, end: 20141117
  3. DIAZEPAM. [Concomitant]
     Active Substance: DIAZEPAM
  4. SEROQUEL [Suspect]
     Active Substance: QUETIAPINE FUMARATE
     Route: 048
  5. SERTRALINE HYDROCHLORIDE. [Concomitant]
     Active Substance: SERTRALINE HYDROCHLORIDE
  6. CARBAMAZEPIN [Concomitant]
     Active Substance: CARBAMAZEPINE

REACTIONS (5)
  - Drug interaction [Unknown]
  - Mental impairment [Recovered/Resolved]
  - Dizziness [Recovered/Resolved]
  - Drug effect decreased [Unknown]
  - Panic reaction [Recovered/Resolved]

NARRATIVE: CASE EVENT DATE: 20141109
